FAERS Safety Report 11987783 (Version 1)
Quarter: 2016Q1

REPORT INFORMATION
  Report Type: Spontaneous
  Country: US (occurrence: US)
  Receive Date: 20160202
  Receipt Date: 20160202
  Transmission Date: 20160526
  Serious: No
  Sender: FDA-Public Use
  Company Number: US-JNJFOC-20151226274

PATIENT
  Sex: Female

DRUGS (1)
  1. IMBRUVICA [Suspect]
     Active Substance: IBRUTINIB
     Indication: WALDENSTROM^S MACROGLOBULINAEMIA
     Route: 048
     Dates: start: 20151219

REACTIONS (5)
  - Drug dose omission [Unknown]
  - Headache [Recovering/Resolving]
  - Decreased appetite [Unknown]
  - Fatigue [Unknown]
  - Product difficult to swallow [Unknown]

NARRATIVE: CASE EVENT DATE: 201512
